FAERS Safety Report 18133610 (Version 1)
Quarter: 2020Q3

REPORT INFORMATION
  Report Type: Spontaneous
  Country: CA (occurrence: CA)
  Receive Date: 20200811
  Receipt Date: 20200811
  Transmission Date: 20201103
  Serious: Yes (Life-Threatening)
  Sender: FDA-Public Use
  Company Number: CA-ACCORD-194675

PATIENT
  Age: 9 Year
  Sex: Male
  Weight: 24 kg

DRUGS (53)
  1. FLUDARABINE/FLUDARABINE PHOSPHATE [Suspect]
     Active Substance: FLUDARABINE PHOSPHATE
     Indication: HAEMOPHAGOCYTIC LYMPHOHISTIOCYTOSIS
     Route: 042
  2. CYCLOPHOSPHAMIDE/CYCLOPHOSPHAMIDE MONOHYDRATE [Suspect]
     Active Substance: CYCLOPHOSPHAMIDE
     Route: 042
  3. MORPHINE [Concomitant]
     Active Substance: MORPHINE
  4. FILGRASTIM [Concomitant]
     Active Substance: FILGRASTIM
  5. CLOTRIMAZOLE. [Concomitant]
     Active Substance: CLOTRIMAZOLE
  6. COLECALCIFEROL [Concomitant]
     Active Substance: CHOLECALCIFEROL
  7. VISTIDE [Concomitant]
     Active Substance: CIDOFOVIR
  8. ONDANSETRON [Concomitant]
     Active Substance: ONDANSETRON
  9. METHYLPREDNISOLONE. [Concomitant]
     Active Substance: METHYLPREDNISOLONE
  10. FLUCONAZOLE. [Concomitant]
     Active Substance: FLUCONAZOLE
  11. CEFALEXIN [Concomitant]
     Active Substance: CEPHALEXIN
  12. METHOTREXATE. [Suspect]
     Active Substance: METHOTREXATE
     Indication: HAEMOPHAGOCYTIC LYMPHOHISTIOCYTOSIS
     Route: 037
  13. HYDROCORTISONE. [Suspect]
     Active Substance: HYDROCORTISONE
     Route: 037
  14. METHOTREXATE. [Suspect]
     Active Substance: METHOTREXATE
     Indication: HAEMOPHAGOCYTIC LYMPHOHISTIOCYTOSIS
     Route: 037
  15. SIROLIMUS. [Concomitant]
     Active Substance: SIROLIMUS
  16. CEFTAZIDIME/CEFTAZIDIME PENTAHYDRATE [Concomitant]
     Active Substance: CEFTAZIDIME
  17. ALEMTUZUMAB [Suspect]
     Active Substance: ALEMTUZUMAB
     Indication: HAEMOPHAGOCYTIC LYMPHOHISTIOCYTOSIS
     Route: 042
  18. HEPARIN [Concomitant]
     Active Substance: HEPARIN SODIUM
  19. GANCICLOVIR. [Concomitant]
     Active Substance: GANCICLOVIR
  20. AMOXICILLIN. [Concomitant]
     Active Substance: AMOXICILLIN
  21. ALEMTUZUMAB [Suspect]
     Active Substance: ALEMTUZUMAB
     Indication: HAEMOPHAGOCYTIC LYMPHOHISTIOCYTOSIS
     Route: 042
  22. FOSCAVIR [Suspect]
     Active Substance: FOSCARNET SODIUM
     Indication: PRODUCT USED FOR UNKNOWN INDICATION
     Dosage: STRENGTH: 24 MG/ML
  23. TOBRAMYCIN. [Concomitant]
     Active Substance: TOBRAMYCIN
  24. PREDNISONE. [Concomitant]
     Active Substance: PREDNISONE
  25. LORAZEPAM. [Concomitant]
     Active Substance: LORAZEPAM
  26. LORATADINE. [Concomitant]
     Active Substance: LORATADINE
  27. DEXAMETHASONE. [Concomitant]
     Active Substance: DEXAMETHASONE
     Route: 014
  28. CHLORHEXIDINE [Concomitant]
     Active Substance: CHLORHEXIDINE
  29. ALEMTUZUMAB [Suspect]
     Active Substance: ALEMTUZUMAB
     Indication: HAEMOPHAGOCYTIC LYMPHOHISTIOCYTOSIS
     Route: 042
  30. ALEMTUZUMAB [Suspect]
     Active Substance: ALEMTUZUMAB
     Indication: HAEMOPHAGOCYTIC LYMPHOHISTIOCYTOSIS
     Route: 042
  31. ALEMTUZUMAB [Suspect]
     Active Substance: ALEMTUZUMAB
     Indication: HAEMOPHAGOCYTIC LYMPHOHISTIOCYTOSIS
     Route: 042
  32. CYTARABINE/CYTARABINE HYDROCHLORIDE/CYTARABINE OCFOSFATE [Suspect]
     Active Substance: CYTARABINE
     Route: 037
  33. VALPROIC ACID. [Concomitant]
     Active Substance: VALPROIC ACID
  34. MACROGOL [Concomitant]
     Active Substance: POLYETHYLENE GLYCOLS
  35. PHOSPHORIC ACID [Concomitant]
     Active Substance: PHOSPHORIC ACID
  36. FAMCICLOVIR. [Concomitant]
     Active Substance: FAMCICLOVIR
  37. ALTEPLASE. [Concomitant]
     Active Substance: ALTEPLASE
  38. BUSULFAN. [Suspect]
     Active Substance: BUSULFAN
     Indication: HAEMOPHAGOCYTIC LYMPHOHISTIOCYTOSIS
     Route: 042
  39. SULFAMETHOXAZOLE/TRIMETHOPRIM [Concomitant]
     Active Substance: SULFAMETHOXAZOLE\TRIMETHOPRIM
  40. RANITIDINE. [Concomitant]
     Active Substance: RANITIDINE
  41. MESNA. [Concomitant]
     Active Substance: MESNA
  42. LIDOCAINE. [Concomitant]
     Active Substance: LIDOCAINE
     Route: 061
  43. LANSOPRAZOLE. [Concomitant]
     Active Substance: LANSOPRAZOLE
  44. DIVALPROEX SODIUM. [Concomitant]
     Active Substance: DIVALPROEX SODIUM
  45. DIPHENHYDRAMINE. [Concomitant]
     Active Substance: DIPHENHYDRAMINE
  46. HYDROCORTISONE. [Suspect]
     Active Substance: HYDROCORTISONE
     Route: 037
  47. PROBENECID. [Concomitant]
     Active Substance: PROBENECID
  48. OXYBUTYNIN. [Concomitant]
     Active Substance: OXYBUTYNIN CHLORIDE
     Dosage: STRENGTH: 5 MG
  49. NIFEDIPINE. [Concomitant]
     Active Substance: NIFEDIPINE
  50. FUROSEMIDE. [Concomitant]
     Active Substance: FUROSEMIDE
  51. EPINEPHRINE. [Concomitant]
     Active Substance: EPINEPHRINE
     Route: 030
  52. PARACETAMOL [Concomitant]
     Active Substance: ACETAMINOPHEN
  53. ALEMTUZUMAB [Suspect]
     Active Substance: ALEMTUZUMAB
     Indication: HAEMOPHAGOCYTIC LYMPHOHISTIOCYTOSIS
     Route: 042

REACTIONS (7)
  - Aplastic anaemia [Unknown]
  - Adenovirus infection [Unknown]
  - Respiratory distress [Unknown]
  - Epistaxis [Unknown]
  - Platelet transfusion [Unknown]
  - Lip haemorrhage [Unknown]
  - Stomatitis [Unknown]
